FAERS Safety Report 24630057 (Version 1)
Quarter: 2024Q4

REPORT INFORMATION
  Report Type: Spontaneous
  Country: US (occurrence: US)
  Receive Date: 20241118
  Receipt Date: 20241118
  Transmission Date: 20250115
  Serious: No
  Sender: BRISTOL-MYERS SQUIBB COMPANY
  Company Number: US-BRISTOL-MYERS SQUIBB COMPANY-2024-179318

PATIENT

DRUGS (1)
  1. SPRYCEL [Suspect]
     Active Substance: DASATINIB
     Indication: Product used for unknown indication

REACTIONS (3)
  - Chest pain [Unknown]
  - Asthenia [Unknown]
  - Dizziness [Unknown]

NARRATIVE: CASE EVENT DATE: 20241113
